FAERS Safety Report 16829461 (Version 1)
Quarter: 2019Q3

REPORT INFORMATION
  Report Type: Spontaneous
  Country: US (occurrence: US)
  Receive Date: 20190919
  Receipt Date: 20190919
  Transmission Date: 20191005
  Serious: Yes (Other)
  Sender: FDA-Public Use
  Company Number: US-AMERICAN REGENT INC-20191117

PATIENT
  Age: 47 Year
  Sex: Female

DRUGS (2)
  1. INJECTAFER [Suspect]
     Active Substance: FERRIC CARBOXYMALTOSE
     Indication: IRON DEFICIENCY ANAEMIA
     Dosage: UNKNOWN 1 DAYS
     Route: 065
     Dates: start: 201905, end: 201905
  2. TPN [Concomitant]
     Active Substance: AMINO ACIDS\DEXTROSE\ELECTROLYTES NOS\SOYBEAN OIL
     Dosage: UNKNOWN
     Route: 065
     Dates: start: 201902

REACTIONS (2)
  - Hypophosphataemia [Recovering/Resolving]
  - Vitamin D deficiency [Unknown]

NARRATIVE: CASE EVENT DATE: 201905
